FAERS Safety Report 7198718-3 (Version None)
Quarter: 2010Q4

REPORT INFORMATION
  Report Type: 
  Country: None (occurrence: None)
  Receive Date: 20101227
  Receipt Date: 20100324
  Transmission Date: 20110411
  Serious: No
  Sender: FDA-Public Use
  Company Number: US-ABBOTT-10P-163-0634705-00

PATIENT
  Sex: Male
  Weight: 65.83 kg

DRUGS (4)
  1. LUPRON DEPOT [Suspect]
     Indication: PROSTATE CANCER
     Route: 050
  2. LIPITOR [Concomitant]
     Indication: BLOOD CHOLESTEROL
  3. ZOLPIDEM [Concomitant]
     Indication: INSOMNIA
  4. CLOZAPINE [Concomitant]
     Indication: ANXIETY

REACTIONS (5)
  - HOT FLUSH [None]
  - HYPERHIDROSIS [None]
  - INJECTION SITE PAIN [None]
  - INJECTION SITE SWELLING [None]
  - PROSTATIC SPECIFIC ANTIGEN INCREASED [None]
